FAERS Safety Report 9842728 (Version 2)
Quarter: 2014Q1

REPORT INFORMATION
  Report Type: Spontaneous
  Country: US (occurrence: US)
  Receive Date: 20140124
  Receipt Date: 20140303
  Transmission Date: 20141002
  Serious: Yes (Other)
  Sender: FDA-Public Use
  Company Number: US-PFIZER INC-2014021833

PATIENT
  Age: 46 Year
  Sex: Female
  Weight: 60.32 kg

DRUGS (2)
  1. PREMARIN [Suspect]
     Indication: HORMONE REPLACEMENT THERAPY
     Dosage: 0.625 MG, ALTERNATE DAY
     Dates: start: 1985
  2. HYDROCHLOROTHIAZIDE [Concomitant]
     Indication: HYPERTENSION
     Dosage: 12.5 MG, DAILY

REACTIONS (6)
  - Colon cancer [Unknown]
  - Neoplasm malignant [Unknown]
  - Abnormal behaviour [Unknown]
  - Agitation [Unknown]
  - Anger [Unknown]
  - Stress [Unknown]
